FAERS Safety Report 18483770 (Version 4)
Quarter: 2025Q3

REPORT INFORMATION
  Report Type: Report from Study
  Country: EU (occurrence: EU)
  Receive Date: 20201109
  Receipt Date: 20250706
  Transmission Date: 20251020
  Serious: Yes (Hospitalization, Other)
  Sender: AUROBINDO
  Company Number: EU-GILEAD-2020-0501171

PATIENT
  Age: 24 Year
  Sex: Female

DRUGS (12)
  1. TENOFOVIR DISOPROXIL [Suspect]
     Active Substance: TENOFOVIR DISOPROXIL
     Indication: HIV infection
     Route: 065
     Dates: start: 2019
  2. TENOFOVIR DISOPROXIL [Suspect]
     Active Substance: TENOFOVIR DISOPROXIL
     Indication: Antiretroviral therapy
  3. EMTRICITABINE [Suspect]
     Active Substance: EMTRICITABINE
     Indication: HIV infection
     Route: 065
     Dates: start: 2019
  4. EMTRICITABINE [Suspect]
     Active Substance: EMTRICITABINE
     Indication: Antiretroviral therapy
  5. TIVICAY [Suspect]
     Active Substance: DOLUTEGRAVIR SODIUM
     Indication: HIV infection
     Route: 065
     Dates: start: 2019
  6. TIVICAY [Suspect]
     Active Substance: DOLUTEGRAVIR SODIUM
     Indication: Antiretroviral therapy
  7. ETHAMBUTOL\ISONIAZID\RIFAMPIN [Concomitant]
     Active Substance: ETHAMBUTOL\ISONIAZID\RIFAMPIN
     Indication: Extrapulmonary tuberculosis
     Route: 065
  8. ETHAMBUTOL [Concomitant]
     Active Substance: ETHAMBUTOL HYDROCHLORIDE
     Indication: Antibiotic therapy
     Route: 065
     Dates: start: 201909
  9. ISONIAZID [Concomitant]
     Active Substance: ISONIAZID
     Indication: Antibiotic therapy
     Route: 065
     Dates: start: 201909
  10. OFLOXACIN [Concomitant]
     Active Substance: OFLOXACIN
     Indication: Extrapulmonary tuberculosis
     Route: 065
     Dates: start: 201909
  11. OFLOXACIN [Concomitant]
     Active Substance: OFLOXACIN
     Indication: Antibiotic therapy
  12. RIFAMPIN [Concomitant]
     Active Substance: RIFAMPIN
     Indication: Antibiotic therapy
     Route: 065
     Dates: start: 201909

REACTIONS (8)
  - Intervertebral disc protrusion [Recovering/Resolving]
  - Back pain [Unknown]
  - Pain [Unknown]
  - Cytomegalovirus infection [Unknown]
  - Staphylococcal bacteraemia [Unknown]
  - Immune reconstitution inflammatory syndrome [Recovering/Resolving]
  - Toxoplasmosis [Unknown]
  - Neurological symptom [Recovering/Resolving]

NARRATIVE: CASE EVENT DATE: 20190101
